FAERS Safety Report 22805274 (Version 2)
Quarter: 2024Q3

REPORT INFORMATION
  Report Type: Spontaneous
  Country: US (occurrence: US)
  Receive Date: 20230809
  Receipt Date: 20240926
  Transmission Date: 20241016
  Serious: Yes (Hospitalization, Disabling)
  Sender: MYLAN
  Company Number: US-MYLANLABS-2023M1083486

PATIENT
  Age: 47 Year
  Sex: Male

DRUGS (1)
  1. ATORVASTATIN [Suspect]
     Active Substance: ATORVASTATIN
     Indication: Product used for unknown indication
     Dosage: 20 MILLIGRAM
     Route: 065

REACTIONS (3)
  - Gait inability [Recovering/Resolving]
  - Weight decreased [Recovering/Resolving]
  - Immune-mediated myositis [Recovering/Resolving]
